FAERS Safety Report 19608056 (Version 3)
Quarter: 2021Q3

REPORT INFORMATION
  Report Type: Spontaneous
  Country: US (occurrence: US)
  Receive Date: 20210726
  Receipt Date: 20210806
  Transmission Date: 20211014
  Serious: Yes (Other)
  Sender: FDA-Public Use
  Company Number: US-CELGENEUS-USA-20210704180

PATIENT
  Sex: Female

DRUGS (2)
  1. REVLIMID [Suspect]
     Active Substance: LENALIDOMIDE
     Dosage: DOSE LOWERED
     Route: 048
     Dates: start: 2021
  2. REVLIMID [Suspect]
     Active Substance: LENALIDOMIDE
     Indication: PLASMA CELL MYELOMA
     Dosage: 25 MILLIGRAM
     Route: 048
     Dates: start: 20210623

REACTIONS (2)
  - Nasopharyngitis [Not Recovered/Not Resolved]
  - Diarrhoea haemorrhagic [Unknown]

NARRATIVE: CASE EVENT DATE: 2021
